FAERS Safety Report 20099478 (Version 1)
Quarter: 2021Q4

REPORT INFORMATION
  Report Type: Spontaneous
  Country: US (occurrence: US)
  Receive Date: 20211122
  Receipt Date: 20211122
  Transmission Date: 20220303
  Serious: Yes (Other)
  Sender: FDA-Public Use
  Company Number: US-SUN PHARMACEUTICAL INDUSTRIES LTD-2021R1-318423

PATIENT
  Age: 55 Year
  Sex: Female

DRUGS (12)
  1. FUROSEMIDE [Suspect]
     Active Substance: FUROSEMIDE
     Indication: Acute kidney injury
     Dosage: HIGH DOSE
     Route: 065
  2. FUROSEMIDE [Suspect]
     Active Substance: FUROSEMIDE
     Indication: Hyponatraemia
  3. FUROSEMIDE [Suspect]
     Active Substance: FUROSEMIDE
     Indication: Generalised oedema
  4. SPIRONOLACTONE [Suspect]
     Active Substance: SPIRONOLACTONE
     Indication: Acute kidney injury
     Dosage: 200 MILLIGRAM
     Route: 065
  5. SPIRONOLACTONE [Suspect]
     Active Substance: SPIRONOLACTONE
     Indication: Hyponatraemia
  6. SPIRONOLACTONE [Suspect]
     Active Substance: SPIRONOLACTONE
     Indication: Generalised oedema
  7. METOLAZONE [Suspect]
     Active Substance: METOLAZONE
     Indication: Acute kidney injury
     Dosage: UNK
     Route: 065
  8. METOLAZONE [Suspect]
     Active Substance: METOLAZONE
     Indication: Hyponatraemia
  9. METOLAZONE [Suspect]
     Active Substance: METOLAZONE
     Indication: Generalised oedema
  10. BUMEX [Suspect]
     Active Substance: BUMETANIDE
     Indication: Acute kidney injury
     Dosage: UNK
     Route: 065
  11. BUMEX [Suspect]
     Active Substance: BUMETANIDE
     Indication: Hyponatraemia
  12. BUMEX [Suspect]
     Active Substance: BUMETANIDE
     Indication: Generalised oedema

REACTIONS (1)
  - Drug resistance [Unknown]
